FAERS Safety Report 7935372-4 (Version None)
Quarter: 2011Q4

REPORT INFORMATION
  Report Type: 
  Country: None (occurrence: None)
  Receive Date: 20111122
  Receipt Date: 20111115
  Transmission Date: 20120403
  Serious: Yes (Hospitalization)
  Sender: FDA-Public Use
  Company Number: FR-B.I. PHARMACEUTICALS,INC./RIDGEFIELD-2011-FF-01050FF

PATIENT
  Age: 89 Year
  Sex: Female

DRUGS (6)
  1. CARVEDILOL [Concomitant]
     Indication: HYPERTENSION
     Route: 048
  2. LASIX [Concomitant]
     Dosage: 40 MG
     Route: 048
  3. ATORVASTATIN CALCIUM [Concomitant]
     Dosage: 20 MG
     Route: 048
  4. PRADAXA [Suspect]
     Indication: ATRIAL FIBRILLATION
     Dosage: 110 MG
     Route: 048
     Dates: start: 20110301, end: 20110917
  5. TERCIAN [Concomitant]
     Dosage: 25 MG
     Route: 048
  6. PERINDOPRIL ERBUMINE [Concomitant]
     Dosage: 4 MG
     Route: 048

REACTIONS (7)
  - OVERDOSE [None]
  - BLOOD FIBRINOGEN DECREASED [None]
  - SEPSIS [None]
  - RENAL FAILURE ACUTE [None]
  - DEMENTIA [None]
  - CARDIAC OUTPUT DECREASED [None]
  - ANAEMIA [None]
